FAERS Safety Report 8378186-6 (Version None)
Quarter: 2012Q2

REPORT INFORMATION
  Report Type: 
  Country: None (occurrence: None)
  Receive Date: 20120522
  Receipt Date: 20120516
  Transmission Date: 20120825
  Serious: No
  Sender: FDA-Public Use
  Company Number: US-PFIZER INC-2012119859

PATIENT
  Sex: Female
  Weight: 77.1 kg

DRUGS (2)
  1. ADVIL PM [Suspect]
     Indication: INSOMNIA
     Dosage: 200/38,MG, DAILY
     Dates: start: 20120101, end: 20120101
  2. EXFORGE [Concomitant]
     Indication: HYPERTENSION
     Dosage: 10/160,MG, DAILY

REACTIONS (2)
  - FEELING ABNORMAL [None]
  - DRUG INEFFECTIVE [None]
